FAERS Safety Report 6518003-X (Version None)
Quarter: 2009Q4

REPORT INFORMATION
  Report Type: 
  Country: None (occurrence: None)
  Receive Date: 20091224
  Receipt Date: 20091215
  Transmission Date: 20100525
  Serious: Yes (Hospitalization)
  Sender: FDA-Public Use
  Company Number: US-ELI_LILLY_AND_COMPANY-US200912003899

PATIENT
  Sex: Female

DRUGS (10)
  1. CYMBALTA [Suspect]
     Indication: DEPRESSION
     Dosage: 60 MG, DAILY (1/D)
  2. PARACETAMOL [Concomitant]
  3. ALPRAZOLAM [Concomitant]
  4. ENOXAPARIN [Concomitant]
  5. LABETALOL HCL [Concomitant]
  6. LAMOTRIGINE [Concomitant]
  7. MEGESTROL ACETATE [Concomitant]
  8. METOCLOPRAMIDE [Concomitant]
  9. SIMVASTATIN [Concomitant]
  10. POTASSIUM CHLORIDE [Concomitant]

REACTIONS (1)
  - OESOPHAGECTOMY [None]
